FAERS Safety Report 8385661-7 (Version None)
Quarter: 2012Q2

REPORT INFORMATION
  Report Type: 
  Country: None (occurrence: None)
  Receive Date: 20120525
  Receipt Date: 20120522
  Transmission Date: 20120825
  Serious: No
  Sender: FDA-Public Use
  Company Number: US-PFIZER INC-2012123700

PATIENT

DRUGS (1)
  1. PROTONIX [Suspect]
     Dosage: 40 MG, 1X/DAY (2 TABLETS ONCE A DAY)

REACTIONS (1)
  - GASTROOESOPHAGEAL REFLUX DISEASE [None]
